FAERS Safety Report 4584221-3 (Version None)
Quarter: 2005Q1

REPORT INFORMATION
  Report Type: 
  Country: None (occurrence: None)
  Receive Date: 20050216
  Receipt Date: 20050207
  Transmission Date: 20050727
  Serious: Yes (Other)
  Sender: FDA-Public Use
  Company Number: SE-GLAXOSMITHKLINE-B0371713A

PATIENT
  Age: 2 Year
  Sex: Male

DRUGS (1)
  1. VENTOLIN [Suspect]
     Dosage: 3ML FOUR TIMES PER DAY
     Route: 065

REACTIONS (3)
  - ABNORMAL BEHAVIOUR [None]
  - AGGRESSION [None]
  - CRYING [None]
